FAERS Safety Report 15255706 (Version 7)
Quarter: 2019Q3

REPORT INFORMATION
  Report Type: Spontaneous
  Country: US (occurrence: US)
  Receive Date: 20180808
  Receipt Date: 20190822
  Transmission Date: 20191004
  Serious: No
  Sender: FDA-Public Use
  Company Number: US-PFIZER INC-2018317066

PATIENT
  Age: 9 Year
  Sex: Female
  Weight: 71.6 kg

DRUGS (3)
  1. GENOTROPIN [Suspect]
     Active Substance: SOMATROPIN
     Indication: ECTOPIC POSTERIOR PITUITARY GLAND
     Dosage: 1.6 MG, DAILY
  2. GENOTROPIN [Suspect]
     Active Substance: SOMATROPIN
     Indication: ADRENAL INSUFFICIENCY
     Dosage: 1.4 MG, ONCE DAILY
     Dates: start: 201710
  3. GENOTROPIN [Suspect]
     Active Substance: SOMATROPIN
     Indication: DYSPLASIA
     Dosage: 13.8 MG, UNK

REACTIONS (8)
  - Device malfunction [Unknown]
  - Drug dose omission by device [Recovered/Resolved]
  - Product use in unapproved indication [Unknown]
  - Stress [Unknown]
  - Insulin-like growth factor increased [Unknown]
  - Device battery issue [Unknown]
  - Malaise [Unknown]
  - Off label use [Unknown]

NARRATIVE: CASE EVENT DATE: 2017
